FAERS Safety Report 7107475-8 (Version None)
Quarter: 2010Q4

REPORT INFORMATION
  Report Type: 
  Country: None (occurrence: None)
  Receive Date: 20101112
  Receipt Date: 20101029
  Transmission Date: 20110411
  Serious: Yes (Other)
  Sender: FDA-Public Use
  Company Number: AUR-APL-2010-02716

PATIENT
  Age: 70 Year
  Sex: Female

DRUGS (1)
  1. FLUOXETINE [Suspect]
     Dosage: 20MG-DAILY-ORAL
     Route: 048
     Dates: end: 20100810

REACTIONS (3)
  - FEAR [None]
  - MIDDLE INSOMNIA [None]
  - NIGHTMARE [None]
